FAERS Safety Report 24247479 (Version 2)
Quarter: 2024Q3

REPORT INFORMATION
  Report Type: Report from Study
  Country: US (occurrence: US)
  Receive Date: 20240826
  Receipt Date: 20240830
  Transmission Date: 20241017
  Serious: Yes (Other)
  Sender: ABBVIE
  Company Number: US-ABBVIE-5887801

PATIENT
  Sex: Female

DRUGS (2)
  1. HUMIRA [Suspect]
     Active Substance: ADALIMUMAB
     Indication: Systemic lupus erythematosus
     Dosage: CITRATE FREE?DOSAGE:40 MG/0.4 ML
     Route: 058
  2. HUMIRA [Suspect]
     Active Substance: ADALIMUMAB
     Indication: Rheumatoid arthritis

REACTIONS (4)
  - Systemic lupus erythematosus [Unknown]
  - Device issue [Unknown]
  - Wrong technique in product usage process [Unknown]
  - Injection site bruising [Unknown]
